FAERS Safety Report 15555940 (Version 3)
Quarter: 2020Q3

REPORT INFORMATION
  Report Type: Report from Study
  Country: IT (occurrence: IT)
  Receive Date: 20181026
  Receipt Date: 20190204
  Transmission Date: 20201105
  Serious: Yes (Death, Hospitalization)
  Sender: FDA-Public Use
  Company Number: IT-JNJFOC-20181035655

PATIENT
  Age: 73 Year
  Sex: Female

DRUGS (12)
  1. NEULASTA [Concomitant]
     Active Substance: PEGFILGRASTIM
     Route: 030
     Dates: start: 20180224
  2. SOLDESAM [Concomitant]
     Active Substance: DEXAMETHASONE
     Dosage: 64 DROPS ON 24TH AND 25?FEB?2018. 32 DROPS ON 26TH AND 27?FEB?2018. 16 DROPS 27?FEB?2018 ONWARDS.
     Route: 048
     Dates: start: 20180224, end: 20180225
  3. SOLDESAM [Concomitant]
     Active Substance: DEXAMETHASONE
     Dosage: 64 DROPS ON 24TH AND 25?FEB?2018. 32 DROPS ON 26TH AND 27?FEB?2018. 16 DROPS 27?FEB?2018 ONWARDS.
     Route: 048
     Dates: start: 20180227
  4. BIOTAD [Concomitant]
     Route: 048
  5. OMEPRAZOLE. [Concomitant]
     Active Substance: OMEPRAZOLE
     Route: 048
  6. ALOXI [Concomitant]
     Active Substance: PALONOSETRON HYDROCHLORIDE
     Route: 042
     Dates: start: 20180223
  7. TRABECTEDIN [Suspect]
     Active Substance: TRABECTEDIN
     Indication: OVARIAN CANCER
     Route: 042
     Dates: start: 20170728, end: 20180223
  8. TRABECTEDIN [Suspect]
     Active Substance: TRABECTEDIN
     Indication: SARCOMA UTERUS
     Route: 042
     Dates: start: 20170728, end: 20180223
  9. LEXOTAN [Concomitant]
     Active Substance: BROMAZEPAM
     Route: 048
  10. LEVOSULPIRIDE [Concomitant]
     Active Substance: LEVOSULPIRIDE
     Route: 048
  11. TRABECTEDIN [Suspect]
     Active Substance: TRABECTEDIN
     Route: 042
  12. SOLDESAM [Concomitant]
     Active Substance: DEXAMETHASONE
     Dosage: 64 DROPS ON 24TH AND 25?FEB?2018. 32 DROPS ON 26TH AND 27?FEB?2018. 16 DROPS 27?FEB?2018 ONWARDS.
     Route: 048
     Dates: start: 20180226, end: 20180227

REACTIONS (4)
  - Thermal burn [Fatal]
  - Sepsis [Fatal]
  - Accident at home [Fatal]
  - Pneumonia [Recovered/Resolved]

NARRATIVE: CASE EVENT DATE: 20180312
